FAERS Safety Report 6396107-2 (Version None)
Quarter: 2009Q4

REPORT INFORMATION
  Report Type: 
  Country: None (occurrence: None)
  Receive Date: 20091009
  Receipt Date: 20091001
  Transmission Date: 20100525
  Serious: Yes (Death, Hospitalization, Other)
  Sender: FDA-Public Use
  Company Number: US-AMGEN-QUU364500

PATIENT
  Sex: Male

DRUGS (10)
  1. ENBREL [Suspect]
     Indication: PSORIASIS
     Route: 058
     Dates: start: 20070906, end: 20071014
  2. METHOTREXATE [Concomitant]
  3. SPIRIVA [Concomitant]
  4. ADVAIR DISKUS 100/50 [Concomitant]
  5. ALBUTEROL [Concomitant]
  6. OXYGEN [Concomitant]
  7. LASIX [Concomitant]
  8. PREDNISONE [Concomitant]
  9. ANTIHYPERTENSIVES [Concomitant]
  10. FOLIC ACID [Concomitant]

REACTIONS (3)
  - COLLAPSE OF LUNG [None]
  - DYSPNOEA [None]
  - HEPATIC FIBROSIS [None]
